FAERS Safety Report 5057930-X (Version None)
Quarter: 2006Q3

REPORT INFORMATION
  Report Type: 
  Country: None (occurrence: None)
  Receive Date: 20060721
  Receipt Date: 20060329
  Transmission Date: 20061208
  Serious: Yes (Other)
  Sender: FDA-Public Use
  Company Number: US-GLAXOSMITHKLINE-A0600632A

PATIENT
  Sex: Male

DRUGS (3)
  1. ROSIGLITAZONE MALEATE [Suspect]
     Indication: BLOOD GLUCOSE
     Route: 048
     Dates: start: 20050101
  2. METFORMIN [Suspect]
     Indication: BLOOD GLUCOSE
     Route: 048
     Dates: start: 20050101
  3. AVANDAMET [Concomitant]
     Indication: BLOOD GLUCOSE
     Route: 048
     Dates: start: 20030101, end: 20050101

REACTIONS (2)
  - DIABETES MELLITUS INADEQUATE CONTROL [None]
  - DRUG EFFECT DECREASED [None]
